FAERS Safety Report 7074118-1 (Version None)
Quarter: 2010Q4

REPORT INFORMATION
  Report Type: 
  Country: None (occurrence: None)
  Receive Date: 20101029
  Receipt Date: 20101020
  Transmission Date: 20110411
  Serious: Yes (Hospitalization)
  Sender: FDA-Public Use
  Company Number: JP-ROCHE-722017

PATIENT
  Age: 60 Year
  Sex: Female

DRUGS (10)
  1. AVASTIN [Suspect]
     Indication: COLON CANCER METASTATIC
     Route: 041
     Dates: start: 20100405
  2. AVASTIN [Suspect]
     Route: 041
  3. OXALIPLATIN [Suspect]
     Indication: COLON CANCER METASTATIC
     Dosage: NOTE: DOSAGE IS UNCERTAIN
     Route: 041
     Dates: start: 20100301
  4. FLUOROURACIL [Concomitant]
     Dosage: DOSAGE IS UNCERTAIN.  ROUTE: INTRAVENOUS BOLUS.
     Route: 050
     Dates: start: 20100301
  5. FLUOROURACIL [Concomitant]
     Dosage: NOTE: DOSAGE IS UNCERTAIN, ROUTE: INTRAVENOUS DRIP
     Route: 050
     Dates: start: 20100301
  6. FLUOROURACIL [Concomitant]
     Dosage: NOTE: DOSAGE IS UNCERTAIN, ROUTE: INTRAVENOUS BOLUS
     Route: 050
  7. FLUOROURACIL [Concomitant]
     Dosage: NOTE; DOSAGE IS UNCERTAIN, ROUTE: INTRAVENOUS DRIP
     Route: 050
  8. LEUCOVORIN CALCIUM [Concomitant]
     Dosage: NOTE: DOSAGE IS UNCERTAIN
     Route: 041
     Dates: start: 20100301
  9. LEUCOVORIN CALCIUM [Concomitant]
     Dosage: DRUG: LEVOFOLINATE CALCIUM
     Route: 041
  10. IRINOTECAN HYDROCHLORIDE [Concomitant]
     Dosage: NOTE: DOSAGE IS UNCERTAIN
     Route: 041

REACTIONS (3)
  - ALTERED STATE OF CONSCIOUSNESS [None]
  - HEPATIC ENCEPHALOPATHY [None]
  - HYPERAMMONAEMIA [None]
